FAERS Safety Report 6867768-6 (Version None)
Quarter: 2010Q3

REPORT INFORMATION
  Report Type: 
  Country: None (occurrence: None)
  Receive Date: 20100722
  Receipt Date: 20100722
  Transmission Date: 20110219
  Serious: Yes (Hospitalization, Other)
  Sender: FDA-Public Use
  Company Number: None

PATIENT
  Sex: Male
  Weight: 7.7 kg

DRUGS (1)
  1. CORTICOTROPIN [Suspect]
     Indication: INFANTILE SPASMS
     Dosage: 32 UNITS IM
     Route: 030
     Dates: start: 20100227, end: 20100630

REACTIONS (1)
  - HYPERTENSION [None]
